FAERS Safety Report 9343768 (Version 5)
Quarter: 2014Q1

REPORT INFORMATION
  Report Type: Report from Study
  Country: JP (occurrence: JP)
  Receive Date: 20130612
  Receipt Date: 20140122
  Transmission Date: 20141002
  Serious: Yes (Other)
  Sender: FDA-Public Use
  Company Number: JP-JNJFOC-20130603078

PATIENT
  Age: 45 Year
  Sex: Female
  Weight: 113 kg

DRUGS (15)
  1. SIMPONI [Suspect]
     Indication: RHEUMATOID ARTHRITIS
     Route: 058
     Dates: start: 20130422, end: 20130422
  2. SIMPONI [Suspect]
     Indication: RHEUMATOID ARTHRITIS
     Route: 058
     Dates: start: 20130520, end: 20130520
  3. SIMPONI [Suspect]
     Indication: RHEUMATOID ARTHRITIS
     Route: 058
     Dates: start: 20130617, end: 20130617
  4. PREDONINE [Concomitant]
     Indication: RHEUMATOID ARTHRITIS
     Route: 048
  5. PREDNISOLONE [Concomitant]
     Indication: RHEUMATOID ARTHRITIS
     Route: 048
  6. LOXONIN [Concomitant]
     Indication: RHEUMATOID ARTHRITIS
  7. REBAMIPIDE [Concomitant]
     Indication: PROPHYLAXIS
  8. TAKEPRON [Concomitant]
     Indication: PROPHYLAXIS
     Route: 048
  9. FOLIAMIN [Concomitant]
     Indication: PROPHYLAXIS
  10. LASIX [Concomitant]
     Indication: PROPHYLAXIS
  11. CRESTOR [Concomitant]
     Indication: HYPERLIPIDAEMIA
     Route: 048
  12. BONALON [Concomitant]
     Indication: PROPHYLAXIS
     Route: 048
  13. GLACTIV [Concomitant]
     Indication: DIABETES MELLITUS
     Route: 048
  14. METHOTREXATE [Concomitant]
     Indication: RHEUMATOID ARTHRITIS
     Route: 065
     Dates: start: 20130617
  15. METHOTREXATE [Concomitant]
     Indication: RHEUMATOID ARTHRITIS
     Route: 065
     Dates: start: 20130408, end: 20130616

REACTIONS (1)
  - Diabetes mellitus [Recovering/Resolving]
